FAERS Safety Report 19735508 (Version 2)
Quarter: 2021Q3

REPORT INFORMATION
  Report Type: Spontaneous
  Country: IT (occurrence: IT)
  Receive Date: 20210824
  Receipt Date: 20210830
  Transmission Date: 20211014
  Serious: Yes (Hospitalization, Other)
  Sender: FDA-Public Use
  Company Number: IT-AUROBINDO-AUR-APL-2021-035531

PATIENT
  Age: 80 Year
  Sex: Male

DRUGS (3)
  1. ALIROCUMAB [Suspect]
     Active Substance: ALIROCUMAB
     Indication: HYPERCHOLESTEROLAEMIA
     Dosage: 75 MILLIGRAM EVERY 2 WEEKS
     Route: 058
  2. ROSUVASTATIN. [Suspect]
     Active Substance: ROSUVASTATIN
     Indication: HYPERCHOLESTEROLAEMIA
     Dosage: 5 MILLIGRAM, ONCE A DAY
     Route: 065
     Dates: start: 2014
  3. EZETIMIBE TABLETS [Suspect]
     Active Substance: EZETIMIBE
     Indication: HYPERCHOLESTEROLAEMIA
     Dosage: 10 MILLIGRAM, ONCE A DAY
     Route: 048

REACTIONS (7)
  - Therapeutic product effect incomplete [Unknown]
  - Myalgia [Recovered/Resolved]
  - Rhabdomyolysis [Recovered/Resolved]
  - Oliguria [Unknown]
  - Chromaturia [Unknown]
  - Muscular weakness [Recovered/Resolved]
  - Acute kidney injury [Recovered/Resolved]
